FAERS Safety Report 24969255 (Version 1)
Quarter: 2025Q1

REPORT INFORMATION
  Report Type: Spontaneous
  Country: US (occurrence: US)
  Receive Date: 20250214
  Receipt Date: 20250214
  Transmission Date: 20250409
  Serious: No
  Sender: TAKEDA
  Company Number: US-TAKEDA-2025TUS016167

PATIENT
  Sex: Male

DRUGS (2)
  1. VYVANSE [Suspect]
     Active Substance: LISDEXAMFETAMINE DIMESYLATE
     Indication: Product used for unknown indication
     Dosage: 50 MILLIGRAM, BID
  2. EVEKEO [Concomitant]
     Active Substance: AMPHETAMINE SULFATE

REACTIONS (2)
  - Insurance issue [Unknown]
  - Off label use [Unknown]
